FAERS Safety Report 5979388-6 (Version None)
Quarter: 2008Q4

REPORT INFORMATION
  Report Type: 
  Country: None (occurrence: None)
  Receive Date: 20081204
  Receipt Date: 20081125
  Transmission Date: 20090506
  Serious: Yes (Other)
  Sender: FDA-Public Use
  Company Number: CZ-AVENTIS-200821100GDDC

PATIENT
  Age: 44 Year
  Sex: Female
  Weight: 70 kg

DRUGS (6)
  1. ARAVA [Suspect]
     Indication: RHEUMATOID ARTHRITIS
     Route: 048
     Dates: start: 20080310, end: 20080410
  2. RECOXA [Concomitant]
     Route: 048
  3. PREDNISONE [Concomitant]
     Indication: RHEUMATOID ARTHRITIS
     Route: 048
  4. EQUORAL [Concomitant]
     Indication: RHEUMATOID ARTHRITIS
     Route: 048
  5. ANAVENOL [Concomitant]
     Dosage: DOSE: 2 TABLETS
     Route: 048
  6. RIVOTRIL [Concomitant]
     Route: 048

REACTIONS (8)
  - ABDOMINAL PAIN [None]
  - ARTHRALGIA [None]
  - HEPATIC ENZYME INCREASED [None]
  - HEPATOMEGALY [None]
  - HEPATOTOXICITY [None]
  - NAUSEA [None]
  - PRURITUS [None]
  - VOMITING [None]
